FAERS Safety Report 25933022 (Version 2)
Quarter: 2025Q4

REPORT INFORMATION
  Report Type: Spontaneous
  Country: BR (occurrence: BR)
  Receive Date: 20251017
  Receipt Date: 20251028
  Transmission Date: 20260118
  Serious: Yes (Other)
  Sender: BAXTER
  Company Number: BR-BAXTER-2025BAX022625

PATIENT
  Age: 37 Year
  Sex: Female

DRUGS (3)
  1. IRON SUCROSE [Suspect]
     Active Substance: IRON SUCROSE
     Indication: Anaemia
     Dosage: 4MG/MIN (TEST DOSE)
     Route: 065
  2. IRON SUCROSE [Suspect]
     Active Substance: IRON SUCROSE
     Dosage: DOSAGE: 2 AMPOULES (SINGLE DOSE) DILUTED IN 250 ML OF 0.9% OF SALINE SOLUTION
     Route: 042
     Dates: start: 20250905, end: 20250905
  3. SODIUM CHLORIDE [Suspect]
     Active Substance: SODIUM CHLORIDE
     Indication: Medication dilution
     Dosage: 250 ML (SINGLE DOSE) OF 0.9% OF SALINE SOLUTION WITH SURCROFER
     Route: 042
     Dates: start: 20250905, end: 20250905

REACTIONS (3)
  - Paraesthesia [Recovered/Resolved]
  - Erythema [Recovered/Resolved]
  - Exposure during pregnancy [Unknown]

NARRATIVE: CASE EVENT DATE: 20250905
